FAERS Safety Report 18960762 (Version 1)
Quarter: 2021Q1

REPORT INFORMATION
  Report Type: Report from Study
  Country: CN (occurrence: CN)
  Receive Date: 20210302
  Receipt Date: 20210302
  Transmission Date: 20210420
  Serious: Yes (Hospitalization)
  Sender: FDA-Public Use
  Company Number: CN-ASTRAZENECA-2021A078162

PATIENT
  Age: 26808 Day
  Sex: Male

DRUGS (4)
  1. IRBESARTAN. [Concomitant]
     Active Substance: IRBESARTAN
     Route: 048
     Dates: start: 2015
  2. METOPROLOL SUCCINATE. [Concomitant]
     Active Substance: METOPROLOL SUCCINATE
     Route: 048
  3. OSIMERTINIB. [Suspect]
     Active Substance: OSIMERTINIB
     Indication: NON-SMALL CELL LUNG CANCER
     Route: 048
     Dates: start: 20200527
  4. REPAGLINIDE. [Concomitant]
     Active Substance: REPAGLINIDE
     Route: 048
     Dates: start: 2015

REACTIONS (1)
  - Tendon injury [Not Recovered/Not Resolved]

NARRATIVE: CASE EVENT DATE: 20210219
